FAERS Safety Report 7120644-6 (Version None)
Quarter: 2010Q4

REPORT INFORMATION
  Report Type: 
  Country: None (occurrence: None)
  Receive Date: 20101124
  Receipt Date: 20101116
  Transmission Date: 20110411
  Serious: Yes (Hospitalization)
  Sender: FDA-Public Use
  Company Number: US-US-EMD SERONO, INC.-231975J09USA

PATIENT
  Sex: Male
  Weight: 82 kg

DRUGS (3)
  1. REBIF [Suspect]
     Indication: MULTIPLE SCLEROSIS
     Dates: start: 20090827, end: 20090101
  2. REBIF [Suspect]
     Route: 058
     Dates: start: 20090101, end: 20100501
  3. REBIF [Suspect]
     Route: 058
     Dates: start: 20100101

REACTIONS (8)
  - ABDOMINAL PAIN [None]
  - BLOOD PRESSURE INCREASED [None]
  - CORONARY ARTERY STENOSIS [None]
  - HEART RATE INCREASED [None]
  - HYPOAESTHESIA [None]
  - PAIN [None]
  - PAIN IN EXTREMITY [None]
  - VISION BLURRED [None]
